FAERS Safety Report 22818443 (Version 3)
Quarter: 2024Q4

REPORT INFORMATION
  Report Type: Report from Study
  Country: BR (occurrence: BR)
  Receive Date: 20230814
  Receipt Date: 20241025
  Transmission Date: 20250114
  Serious: Yes (Hospitalization, Other)
  Sender: SANOFI AVENTIS
  Company Number: BR-SA-SAC20230719001201

PATIENT
  Age: 36 Year
  Sex: Male
  Weight: 55 kg

DRUGS (2)
  1. AGALSIDASE BETA [Suspect]
     Active Substance: AGALSIDASE BETA
     Indication: Fabry^s disease
     Dosage: UNK UNK, QOW
     Route: 042
     Dates: start: 202301, end: 20230508
  2. AGALSIDASE BETA [Suspect]
     Active Substance: AGALSIDASE BETA
     Dosage: 2 DF, QOW
     Route: 042
     Dates: end: 202402

REACTIONS (9)
  - Arrhythmia [Recovered/Resolved]
  - Road traffic accident [Unknown]
  - Erysipelas [Unknown]
  - Epistaxis [Recovered/Resolved]
  - Malaise [Unknown]
  - Infusion related reaction [Recovered/Resolved]
  - Dyspnoea [Recovered/Resolved]
  - Fatigue [Recovered/Resolved]
  - Chest discomfort [Recovered/Resolved]

NARRATIVE: CASE EVENT DATE: 20230101
